FAERS Safety Report 10071644 (Version 4)
Quarter: 2014Q2

REPORT INFORMATION
  Report Type: Report from Study
  Country: FR (occurrence: FR)
  Receive Date: 20140411
  Receipt Date: 20140507
  Transmission Date: 20141212
  Serious: Yes (Other)
  Sender: FDA-Public Use
  Company Number: FR-AMGEN-FRACT2014018979

PATIENT
  Age: 75 Year
  Sex: Female
  Weight: 86 kg

DRUGS (6)
  1. PANITUMUMAB [Suspect]
     Indication: OESOPHAGEAL ADENOCARCINOMA METASTATIC
     Dosage: 500 MG, Q2WK
     Route: 042
     Dates: start: 20130319
  2. LEVOFOLINATE [Concomitant]
     Indication: OESOPHAGEAL ADENOCARCINOMA METASTATIC
     Dosage: 382 MG, UNK
     Route: 042
     Dates: start: 20130319
  3. OXALIPLATIN [Concomitant]
     Indication: OESOPHAGEAL ADENOCARCINOMA METASTATIC
     Dosage: 162.5 MG, UNK
     Route: 042
     Dates: start: 20130319
  4. FLUOROURACIL [Concomitant]
     Indication: OESOPHAGEAL ADENOCARCINOMA METASTATIC
     Dosage: 5350 MG, UNK
     Route: 042
     Dates: start: 20130319
  5. KALEORID [Concomitant]
     Indication: HYPOKALAEMIA
     Dosage: UNK
     Route: 048
     Dates: start: 20130501
  6. NEXIUM                             /01479302/ [Concomitant]
     Indication: PROPHYLAXIS AGAINST GASTROINTESTINAL ULCER
     Dosage: UNK
     Route: 048
     Dates: start: 20130501

REACTIONS (1)
  - Diarrhoea [Recovered/Resolved]
